FAERS Safety Report 9151192 (Version 1)
Quarter: 2013Q1

REPORT INFORMATION
  Report Type: Report from Study
  Country: US (occurrence: US)
  Receive Date: 20130308
  Receipt Date: 20130308
  Transmission Date: 20140127
  Serious: Yes (Death)
  Sender: FDA-Public Use
  Company Number: US-ROCHE-1199142

PATIENT
  Age: 71 Year
  Sex: Female
  Weight: 74.46 kg

DRUGS (1)
  1. CAPECITABINE [Suspect]
     Indication: PANCREATIC CARCINOMA METASTATIC
     Route: 048
     Dates: start: 20100402, end: 201009

REACTIONS (8)
  - Death [Fatal]
  - Erythema [Unknown]
  - Burning sensation [Unknown]
  - Skin exfoliation [Unknown]
  - Erythema [Unknown]
  - Onychomadesis [Unknown]
  - Fatigue [Unknown]
  - Diarrhoea [Unknown]
